FAERS Safety Report 9284760 (Version 1)
Quarter: 2013Q2

REPORT INFORMATION
  Report Type: Spontaneous
  Country: US (occurrence: US)
  Receive Date: 20130513
  Receipt Date: 20130513
  Transmission Date: 20140414
  Serious: Yes (Life-Threatening, Hospitalization, Other)
  Sender: FDA-Public Use
  Company Number: US-ROCHE-1218580

PATIENT
  Age: 62 Year
  Sex: Female
  Weight: 97.16 kg

DRUGS (7)
  1. RITUXAN [Suspect]
     Indication: NON-HODGKIN^S LYMPHOMA
     Route: 042
     Dates: start: 20130327, end: 20130327
  2. TREANDA [Suspect]
     Indication: NON-HODGKIN^S LYMPHOMA
     Route: 042
     Dates: start: 20130327
  3. NEULASTA [Concomitant]
     Route: 058
     Dates: start: 20130329, end: 20130329
  4. TYLENOL [Concomitant]
     Indication: PREMEDICATION
     Route: 048
     Dates: start: 20130327, end: 20130327
  5. BENADRYL [Concomitant]
     Indication: PREMEDICATION
     Route: 042
     Dates: start: 20130327, end: 20130328
  6. ALOXI [Concomitant]
     Route: 042
     Dates: start: 20130327, end: 20130327
  7. DECADRON [Concomitant]
     Indication: PREMEDICATION
     Route: 042
     Dates: start: 20130327, end: 20130328

REACTIONS (9)
  - Atrial fibrillation [Not Recovered/Not Resolved]
  - Cardiomyopathy [Not Recovered/Not Resolved]
  - Respiratory failure [Not Recovered/Not Resolved]
  - Myocarditis [Not Recovered/Not Resolved]
  - Hypotension [Not Recovered/Not Resolved]
  - Dyspnoea [Unknown]
  - Renal failure [Recovered/Resolved]
  - Rash [Unknown]
  - Sepsis [Unknown]
